FAERS Safety Report 15618982 (Version 3)
Quarter: 2019Q1

REPORT INFORMATION
  Report Type: Report from Study
  Country: BR (occurrence: BR)
  Receive Date: 20181114
  Receipt Date: 20190203
  Transmission Date: 20190417
  Serious: Yes (Hospitalization)
  Sender: FDA-Public Use
  Company Number: BR-UCBSA-2018049854

PATIENT
  Age: 31 Year
  Sex: Female
  Weight: 74 kg

DRUGS (7)
  1. VIMPAT [Suspect]
     Active Substance: LACOSAMIDE
     Indication: OFF LABEL USE
  2. TRILEPTAL [Concomitant]
     Active Substance: OXCARBAZEPINE
     Indication: NEOPLASM
     Dosage: UNK
  3. LEVETIRACETAM. [Suspect]
     Active Substance: LEVETIRACETAM
     Indication: NEOPLASM
     Dosage: 500MG IN THE MORNING AND 750MG IN THE NIGHT, 2X/DAY (BID)
     Route: 048
     Dates: start: 20180926
  4. LAMOTRIGINA [Concomitant]
     Active Substance: LAMOTRIGINE
     Indication: NEOPLASM
     Dosage: 25 MG, ONCE DAILY (QD)
     Dates: start: 2018
  5. VIMPAT [Suspect]
     Active Substance: LACOSAMIDE
     Indication: NEOPLASM
     Dosage: UNK
     Route: 048
     Dates: start: 201811, end: 201811
  6. TEMODAL [Concomitant]
     Active Substance: TEMOZOLOMIDE
     Indication: NEOPLASM
  7. LEVETIRACETAM. [Suspect]
     Active Substance: LEVETIRACETAM
     Indication: OFF LABEL USE

REACTIONS (2)
  - Aphasia [Not Recovered/Not Resolved]
  - Off label use [Unknown]

NARRATIVE: CASE EVENT DATE: 20180926
